FAERS Safety Report 9774636 (Version 1)
Quarter: 2013Q4

REPORT INFORMATION
  Report Type: Spontaneous
  Country: US (occurrence: None)
  Receive Date: 20131219
  Receipt Date: 20131219
  Transmission Date: 20140711
  Serious: Yes (Hospitalization)
  Sender: FDA-Public Use
  Company Number: None

PATIENT
  Age: 66 Year
  Sex: Male
  Weight: 88.4 kg

DRUGS (1)
  1. CETUXIMAB [Suspect]
     Indication: LARYNGEAL SQUAMOUS CELL CARCINOMA
     Route: 042
     Dates: start: 20130802, end: 20130802

REACTIONS (12)
  - Headache [None]
  - Anaphylactic reaction [None]
  - Cough [None]
  - Wheezing [None]
  - Nausea [None]
  - Vomiting [None]
  - Hypotension [None]
  - Tachycardia [None]
  - Heart rate increased [None]
  - Chest pain [None]
  - Abdominal pain [None]
  - Blood pressure increased [None]
